FAERS Safety Report 4999433-4 (Version None)
Quarter: 2006Q2

REPORT INFORMATION
  Report Type: 
  Country: None (occurrence: None)
  Receive Date: 20060509
  Receipt Date: 20060509
  Transmission Date: 20061013
  Serious: Yes (Life-Threatening, Hospitalization)
  Sender: FDA-Public Use
  Company Number: None

PATIENT
  Age: 58 Year
  Sex: Male

DRUGS (2)
  1. INSULIN [Suspect]
     Indication: DIABETES MELLITUS INSULIN-DEPENDENT
  2. ASPIRIN [Concomitant]

REACTIONS (7)
  - BLOOD GLUCOSE INCREASED [None]
  - GLUCOSE URINE PRESENT [None]
  - POLYURIA [None]
  - THIRST [None]
  - TREATMENT NONCOMPLIANCE [None]
  - URINE KETONE BODY PRESENT [None]
  - VOMITING [None]
